FAERS Safety Report 6445378-2 (Version None)
Quarter: 2009Q4

REPORT INFORMATION
  Report Type: 
  Country: None (occurrence: None)
  Receive Date: 20091118
  Receipt Date: 20091105
  Transmission Date: 20100525
  Serious: Yes (Hospitalization, Other)
  Sender: FDA-Public Use
  Company Number: PHEH2009US15252

PATIENT
  Age: 24 Year
  Sex: Female

DRUGS (1)
  1. ZOMETA [Suspect]
     Indication: BREAST CANCER
     Dosage: 4 MG, QMO
     Route: 042
     Dates: start: 20091102

REACTIONS (10)
  - CHILLS [None]
  - COUGH [None]
  - DISORIENTATION [None]
  - DYSPNOEA [None]
  - ERYTHEMA [None]
  - NAUSEA [None]
  - NECK PAIN [None]
  - PYREXIA [None]
  - RASH [None]
  - RETCHING [None]
